FAERS Safety Report 9640119 (Version 1)
Quarter: 2013Q4

REPORT INFORMATION
  Report Type: Spontaneous
  Country: US (occurrence: US)
  Receive Date: 20131023
  Receipt Date: 20131023
  Transmission Date: 20140711
  Serious: No
  Sender: FDA-Public Use
  Company Number: US-PFIZER INC-2013300162

PATIENT
  Age: 61 Year
  Sex: Male
  Weight: 77.1 kg

DRUGS (2)
  1. SILDENAFIL CITRATE [Suspect]
     Indication: ERECTILE DYSFUNCTION
     Dosage: 20 MG, 4 TABLETS
     Route: 048
     Dates: start: 2013
  2. SILDENAFIL CITRATE [Suspect]
     Dosage: 20 MG, 5 TABLETS
     Route: 048
     Dates: start: 20131016

REACTIONS (4)
  - Drug ineffective [Unknown]
  - Blood cholesterol increased [Unknown]
  - Glycosylated haemoglobin increased [Unknown]
  - Off label use [Unknown]
